FAERS Safety Report 11108839 (Version 1)
Quarter: 2015Q2

REPORT INFORMATION
  Report Type: Spontaneous
  Country: CH (occurrence: CH)
  Receive Date: 20150513
  Receipt Date: 20150513
  Transmission Date: 20150821
  Serious: Yes (Other)
  Sender: FDA-Public Use
  Company Number: CH-AMGEN-CHESP2015044578

PATIENT
  Age: 62 Year
  Sex: Female
  Weight: 93 kg

DRUGS (7)
  1. MAGNESIUM DIASPORAL                /00434501/ [Concomitant]
     Dosage: 300 MG, QD
     Route: 048
  2. VITAMIN B12 AMINO [Concomitant]
     Dosage: 1 MG, UNK
  3. ESOMEP                             /00661201/ [Concomitant]
     Dosage: 20 MG, QD
     Route: 048
  4. CONDROSULF [Concomitant]
     Active Substance: CHONDROITIN SULFATE (CHICKEN)
     Dosage: 800 MG, QD
     Route: 048
  5. KALCIPOS D3 [Concomitant]
     Dosage: 500MG/800 E, QD
     Route: 048
  6. PROLIA [Suspect]
     Active Substance: DENOSUMAB
     Indication: OSTEOPOROSIS
     Dosage: Q6MO
     Route: 058
     Dates: start: 20140916, end: 20150326
  7. ISCADOR M [Concomitant]

REACTIONS (4)
  - Pruritus [Recovered/Resolved]
  - Fatigue [Recovered/Resolved]
  - Dermatitis bullous [Recovered/Resolved]
  - Myalgia [Recovered/Resolved]

NARRATIVE: CASE EVENT DATE: 201503
